FAERS Safety Report 8496590-2 (Version None)
Quarter: 2012Q3

REPORT INFORMATION
  Report Type: 
  Country: None (occurrence: None)
  Receive Date: 20120709
  Receipt Date: 20120703
  Transmission Date: 20120928
  Serious: Yes (Death)
  Sender: FDA-Public Use
  Company Number: US-CELGENEUS-163-21880-12070274

PATIENT
  Sex: Male

DRUGS (5)
  1. REVLIMID [Suspect]
     Indication: MULTIPLE MYELOMA
     Dosage: 25 MILLIGRAM
     Route: 048
     Dates: start: 20120524
  2. ZOVIRAX [Concomitant]
     Dosage: 400 MILLIGRAM
     Route: 048
  3. ASPIRIN [Concomitant]
     Dosage: 81 MILLIGRAM
     Route: 048
  4. DIOVAN [Concomitant]
     Dosage: 160/25MG
     Route: 048
  5. BACTRIM [Concomitant]
     Dosage: 400-80MG
     Route: 048

REACTIONS (1)
  - DEATH [None]
